FAERS Safety Report 8050696 (Version 3)
Quarter: 2012Q4

REPORT INFORMATION
  Report Type: Report from Study
  Country: US (occurrence: US)
  Receive Date: 20110725
  Receipt Date: 20121123
  Transmission Date: 20130627
  Serious: Yes (Death)
  Sender: FDA-Public Use
  Company Number: US-JNJFOC-20110706901

PATIENT
  Age: 58 Year
  Sex: Male
  Weight: 51.26 kg

DRUGS (15)
  1. IBUPROFEN [Suspect]
     Indication: RHEUMATOID ARTHRITIS
     Route: 048
     Dates: start: 20110607, end: 20110708
  2. IBUPROFEN [Suspect]
     Indication: OSTEOARTHRITIS
     Route: 048
     Dates: start: 20110607, end: 20110708
  3. AMLODIPINE [Concomitant]
     Route: 048
     Dates: start: 1998
  4. NEXIUM [Concomitant]
     Indication: GASTROINTESTINAL DISORDER THERAPY
     Dosage: 20 or 40 mg
     Route: 048
     Dates: start: 20110607
  5. VARDENAFIL [Concomitant]
     Route: 048
     Dates: start: 2001
  6. INDAPAMIDE [Concomitant]
     Route: 048
     Dates: start: 2001
  7. FLUNISOLIDE [Concomitant]
     Route: 048
     Dates: start: 2006
  8. LORATADINE [Concomitant]
     Route: 048
     Dates: start: 2006
  9. ROSUVASTATIN [Concomitant]
     Route: 048
     Dates: start: 201104
  10. ATENOLOL [Concomitant]
     Route: 048
     Dates: start: 1998
  11. POTASSIUM CHLORIDE [Concomitant]
     Route: 048
     Dates: start: 1998
  12. TERBINAFINE HYDROCHLORIDE [Concomitant]
     Route: 061
     Dates: start: 2006
  13. TERAZOSIN [Concomitant]
     Route: 048
     Dates: start: 2009
  14. ALLOPURINOL [Concomitant]
     Route: 048
     Dates: start: 2006
  15. ACETYLSALICYLIC ACID [Concomitant]
     Route: 048
     Dates: start: 2000

REACTIONS (1)
  - Cardiac arrest [Fatal]
